FAERS Safety Report 24230086 (Version 1)
Quarter: 2024Q3

REPORT INFORMATION
  Report Type: Spontaneous
  Country: JP (occurrence: JP)
  Receive Date: 20240820
  Receipt Date: 20240820
  Transmission Date: 20241017
  Serious: Yes (Other)
  Sender: TAKEDA
  Company Number: JP-TAKEDA-2024TJP012021

PATIENT
  Age: 62 Year
  Sex: Male

DRUGS (2)
  1. ALUNBRIG [Suspect]
     Active Substance: BRIGATINIB
     Indication: Lung neoplasm malignant
     Dosage: 180 MILLIGRAM, QD
     Route: 048
     Dates: start: 20230703
  2. ALUNBRIG [Suspect]
     Active Substance: BRIGATINIB
     Dosage: UNK
     Route: 048
     Dates: end: 20240301

REACTIONS (5)
  - Lung neoplasm malignant [Unknown]
  - Sepsis [Unknown]
  - Blood creatine phosphokinase increased [Recovered/Resolved]
  - Hypertension [Recovered/Resolved]
  - Urinary tract infection [Unknown]
